FAERS Safety Report 14763198 (Version 1)
Quarter: 2018Q2

REPORT INFORMATION
  Report Type: Spontaneous
  Country: US (occurrence: US)
  Receive Date: 20180409
  Receipt Date: 20180409
  Transmission Date: 20180711
  Serious: Yes (Hospitalization)
  Sender: FDA-Public Use
  Company Number: None

PATIENT
  Age: 34 Year
  Sex: Female
  Weight: 80.3 kg

DRUGS (1)
  1. ANTI-THYMOCYTE GLOBULIN (RABBIT) NOS [Suspect]
     Active Substance: LAPINE T-LYMPHOCYTE IMMUNE GLOBULIN
     Indication: TRANSPLANT
     Dosage: ?          OTHER FREQUENCY:CUMULATIVE 4 DAYS;?
     Route: 041
     Dates: start: 20180314, end: 20180317

REACTIONS (1)
  - Serum sickness [None]

NARRATIVE: CASE EVENT DATE: 20180325
